FAERS Safety Report 4684927-1 (Version None)
Quarter: 2005Q2

REPORT INFORMATION
  Report Type: 
  Country: None (occurrence: None)
  Receive Date: 20050606
  Receipt Date: 20050606
  Transmission Date: 20051028
  Serious: Yes (Life-Threatening, Hospitalization)
  Sender: FDA-Public Use
  Company Number: None

PATIENT
  Age: 28 Year
  Sex: Male
  Weight: 102.0593 kg

DRUGS (11)
  1. VIOXX [Suspect]
     Indication: INTERVERTEBRAL DISC DISORDER
     Dosage: 25 MG PO ONCE DAILY
     Route: 048
     Dates: start: 20040729, end: 20040930
  2. VIOXX [Suspect]
     Indication: PAIN
     Dosage: 25 MG PO ONCE DAILY
     Route: 048
     Dates: start: 20040729, end: 20040930
  3. VIOXX [Suspect]
     Indication: ROAD TRAFFIC ACCIDENT
     Dosage: 25 MG PO ONCE DAILY
     Route: 048
     Dates: start: 20040729, end: 20040930
  4. CELEBREX [Suspect]
     Indication: INTERVERTEBRAL DISC DISORDER
     Dosage: 200 MG PO ONCE DAILY
     Route: 048
     Dates: start: 20041001, end: 20041218
  5. CELEBREX [Suspect]
     Indication: PAIN
     Dosage: 200 MG PO ONCE DAILY
     Route: 048
     Dates: start: 20041001, end: 20041218
  6. CELEBREX [Suspect]
     Indication: ROAD TRAFFIC ACCIDENT
     Dosage: 200 MG PO ONCE DAILY
     Route: 048
     Dates: start: 20041001, end: 20041218
  7. VICODIN [Concomitant]
  8. PROTONIX [Concomitant]
  9. VICODIN [Concomitant]
  10. FLEXERIL [Concomitant]
  11. LEXAPRO [Concomitant]

REACTIONS (3)
  - ALANINE AMINOTRANSFERASE INCREASED [None]
  - SYNCOPE [None]
  - VENTRICULAR TACHYCARDIA [None]
